FAERS Safety Report 8610049 (Version 11)
Quarter: 2013Q4

REPORT INFORMATION
  Report Type: Spontaneous
  Country: US (occurrence: US)
  Receive Date: 20120612
  Receipt Date: 20131007
  Transmission Date: 20140711
  Serious: Yes (Hospitalization, Other)
  Sender: FDA-Public Use
  Company Number: US-SANOFI-AVENTIS-2011SA048280

PATIENT
  Age: 62 Year
  Sex: Male
  Weight: 72.5 kg

DRUGS (82)
  1. PLAVIX [Suspect]
     Indication: CEREBROVASCULAR ACCIDENT
     Route: 048
     Dates: start: 20070504, end: 201007
  2. METHYLPREDNISOLONE [Concomitant]
  3. POTASSIUM CHLORIDE [Concomitant]
  4. HYDROCHLOROTHIAZIDE [Concomitant]
  5. LEXAPRO [Concomitant]
  6. LIPITOR /UNK/ [Concomitant]
  7. METFORMIN [Concomitant]
  8. ZYRTEC [Concomitant]
  9. LORAZEPAM [Concomitant]
  10. GLIPIZIDE [Concomitant]
  11. LISINOPRIL [Concomitant]
  12. VIAGRA [Concomitant]
  13. AMOXICILLIN [Concomitant]
  14. FEXOFENADINE [Concomitant]
  15. DIPHENOXYLATE W/ATROPINE SULFATE [Concomitant]
  16. NEXIUM [Concomitant]
  17. PROMETHAZINE [Concomitant]
  18. TAMIFLU /GFR/ [Concomitant]
  19. AZITHROMYCIN [Concomitant]
  20. ECONAZOLE [Concomitant]
  21. TERBINAFINE [Concomitant]
  22. MEGACE [Concomitant]
  23. CIPROFLOXACIN [Concomitant]
  24. PANTOPRAZOLE [Concomitant]
  25. MULTIVITAMINS [Concomitant]
  26. ATORVASTATIN [Concomitant]
  27. ONDANSETRON [Concomitant]
  28. HYDROCODONE BITARTRATE/PARACETAMOL [Concomitant]
  29. HUMULIN [Concomitant]
  30. MEPERIDINE [Concomitant]
  31. PIPERACILLIN/TAZOBACTAM [Concomitant]
  32. ENOXAPARIN [Concomitant]
  33. MAGNESIUM [Concomitant]
  34. MIDAZOLAM [Concomitant]
  35. FUROSEMIDE [Concomitant]
  36. HEPARIN [Concomitant]
  37. HYDROMORPHONE [Concomitant]
  38. METOPROLOL [Concomitant]
  39. ENALAPRIL [Concomitant]
  40. TAMSULOSIN [Concomitant]
  41. ASPIRIN [Concomitant]
  42. DARVOCET-N [Concomitant]
  43. ALL OTHER THERAPEUTIC PRODUCTS [Concomitant]
  44. FENTANYL [Concomitant]
  45. MEROPENEM [Concomitant]
  46. ERTAPENEM [Concomitant]
  47. MORPHINE [Concomitant]
  48. BUPIVACAINE [Concomitant]
  49. CISATRACURIUM [Concomitant]
  50. EPHEDRIN [Concomitant]
  51. GLYCOPYRROLATE [Concomitant]
  52. LIDOCAINE [Concomitant]
  53. ALL OTHER THERAPEUTIC PRODUCTS [Concomitant]
  54. NEOSTIGMINE [Concomitant]
  55. ATROPINE [Concomitant]
  56. PHENYLEPHRINE [Concomitant]
  57. PROPOFOL [Concomitant]
  58. ROCURONIUM [Concomitant]
  59. LABETALOL [Concomitant]
  60. BISACODYL [Concomitant]
  61. CALCIUM GLUCONATE [Concomitant]
  62. RANITIDINE [Concomitant]
  63. SUCCINYLCHOLINE CHLORIDE [Concomitant]
  64. DIPHENHYDRAMINE [Concomitant]
  65. METOCLOPRAMIDE [Concomitant]
  66. CEFTRIAXONE [Concomitant]
  67. BUPIVACAINE [Concomitant]
  68. EPHEDRINE [Concomitant]
  69. GLYCOPYRROLATE [Concomitant]
  70. DESFLURANE [Concomitant]
  71. ROCURONIUM [Concomitant]
  72. LACTATED RINGER^S INJECTION [Concomitant]
  73. NORMAL SALINE [Concomitant]
  74. FUROSEMIDE [Concomitant]
  75. NIFEDIPINE [Concomitant]
  76. NIFEDIPINE [Concomitant]
  77. ADVIL [Concomitant]
  78. NAPROXEN [Concomitant]
  79. EXCEDRIN [Concomitant]
  80. CELEBREX [Concomitant]
  81. MOTRIN [Concomitant]
  82. TADALAFIL [Concomitant]

REACTIONS (21)
  - Pancreatic pseudocyst [Unknown]
  - Abdominal pain upper [Unknown]
  - General physical health deterioration [Unknown]
  - Enterocutaneous fistula [Recovered/Resolved with Sequelae]
  - Abdominal abscess [Recovered/Resolved]
  - Large intestine perforation [Unknown]
  - Pleural effusion [Unknown]
  - Adrenal mass [Unknown]
  - Hepatic steatosis [Unknown]
  - Nephrolithiasis [Unknown]
  - Post procedural complication [Unknown]
  - Intestinal perforation [Unknown]
  - Weight decreased [Unknown]
  - Splenic haemorrhage [Unknown]
  - Gastrointestinal haemorrhage [Unknown]
  - Back pain [Unknown]
  - Body tinea [Recovering/Resolving]
  - Melanocytic naevus [Unknown]
  - Diarrhoea [Unknown]
  - Status epilepticus [Unknown]
  - Blood glucose increased [Unknown]
